FAERS Safety Report 22954683 (Version 5)
Quarter: 2025Q1

REPORT INFORMATION
  Report Type: Spontaneous
  Country: US (occurrence: US)
  Receive Date: 20230918
  Receipt Date: 20250211
  Transmission Date: 20250409
  Serious: No
  Sender: VERTEX
  Company Number: US-VERTEX PHARMACEUTICALS-2023-013551

PATIENT
  Sex: Male
  Weight: 30 kg

DRUGS (2)
  1. TRIKAFTA [Suspect]
     Active Substance: ELEXACAFTOR\IVACAFTOR\TEZACAFTOR
     Indication: Cystic fibrosis
     Dosage: 2 ORANGE PACKETS IN THE MORNING AND 2 PINK PACKETS IN THE EVENING
     Route: 048
     Dates: start: 20230531
  2. TRIKAFTA [Suspect]
     Active Substance: ELEXACAFTOR\IVACAFTOR\TEZACAFTOR
     Dosage: 100MG ELEXA /50MG TEZA/75MG IVA AND 75 MG IVA
     Route: 048

REACTIONS (3)
  - Autism spectrum disorder [Unknown]
  - Polyuria [Not Recovered/Not Resolved]
  - Urinary incontinence [Recovering/Resolving]

NARRATIVE: CASE EVENT DATE: 20230101
